FAERS Safety Report 9758345 (Version 4)
Quarter: 2014Q1

REPORT INFORMATION
  Report Type: Spontaneous
  Country: BE (occurrence: BE)
  Receive Date: 20131216
  Receipt Date: 20140205
  Transmission Date: 20141002
  Serious: Yes (Other)
  Sender: FDA-Public Use
  Company Number: BE-BEH-2013039029

PATIENT
  Age: 60 Year
  Sex: Female

DRUGS (10)
  1. HIZENTRA [Suspect]
     Dosage: 5 G IN TOTAL OF BOTH BATCH NUMBERS
     Route: 058
     Dates: start: 20130507
  2. HIZENTRA [Suspect]
     Dosage: 5 G IN TOTAL OF BOTH BATCH NUMBERS
     Route: 058
     Dates: start: 20130507
  3. HIZENTRA [Suspect]
     Dosage: 5 IN TOTAL OF BOTH BATCH NUMBERS
     Route: 058
     Dates: start: 20130611
  4. HIZENTRA [Suspect]
     Dosage: 5 G IN TOTAL OF BOTH BATCH NUMBERS
     Route: 058
     Dates: start: 20130611
  5. HIZENTRA [Suspect]
     Indication: HYPOGAMMAGLOBULINAEMIA
     Dosage: SINCE 07-MAY-2013 ONGOING WEEKLY THERAPY
  6. SIPRALEXA [Concomitant]
     Dosage: 1/2 CO
     Route: 065
  7. SOLIAN [Concomitant]
     Dosage: 1/2 CO
     Route: 065
  8. PANTOPRAZOLE [Concomitant]
     Dosage: 1 CO
     Route: 065
  9. ZOLPIDEM [Concomitant]
     Dosage: 1/2 CO
     Route: 065
  10. DAFALGAN CODEINE [Concomitant]

REACTIONS (3)
  - Drug ineffective [Unknown]
  - Headache [Recovered/Resolved]
  - Weight increased [Unknown]
